FAERS Safety Report 24144423 (Version 2)
Quarter: 2024Q3

REPORT INFORMATION
  Report Type: Spontaneous
  Country: FR (occurrence: FR)
  Receive Date: 20240728
  Receipt Date: 20240805
  Transmission Date: 20241016
  Serious: Yes (Death)
  Sender: ROCHE
  Company Number: None

PATIENT
  Age: 40 Year
  Sex: Female
  Weight: 50 kg

DRUGS (11)
  1. ALTEPLASE [Suspect]
     Active Substance: ALTEPLASE
     Indication: Prosthetic cardiac valve thrombosis
     Dosage: 0.6MG/KG
     Route: 042
     Dates: start: 20231118, end: 20231118
  2. KARDEGIC [Suspect]
     Active Substance: ASPIRIN DL-LYSINE
     Indication: Cardiovascular event prophylaxis
     Dosage: POWDER FOR DRINKABLE SOLUTION IN SACHET
     Route: 048
     Dates: start: 20180604, end: 20231117
  3. HEPARIN SODIUM [Interacting]
     Active Substance: HEPARIN SODIUM
     Indication: Prosthetic cardiac valve thrombosis
     Route: 042
     Dates: start: 20231118, end: 20231118
  4. HEPARIN SODIUM [Interacting]
     Active Substance: HEPARIN SODIUM
     Route: 042
     Dates: start: 20231120, end: 20231121
  5. HEPARIN SODIUM [Interacting]
     Active Substance: HEPARIN SODIUM
     Route: 042
     Dates: start: 20231119, end: 20231119
  6. HYDROCORTISONE [Concomitant]
     Active Substance: HYDROCORTISONE\HYDROCORTISONE ACETATE
     Indication: Septic shock
     Route: 042
     Dates: start: 20231117, end: 20231121
  7. PANTOPRAZOLE SODIUM [Concomitant]
     Active Substance: PANTOPRAZOLE SODIUM
     Indication: Prophylaxis against gastrointestinal ulcer
     Route: 042
     Dates: start: 20231118, end: 20231120
  8. MAGNESIUM SULFATE PROAMP [Concomitant]
     Indication: Mineral supplementation
     Route: 042
     Dates: start: 20231119, end: 20231121
  9. BUDESONIDE [Concomitant]
     Active Substance: BUDESONIDE
     Indication: Chronic obstructive pulmonary disease
     Route: 055
     Dates: start: 20231119, end: 20231121
  10. PIPERACILLIN SODIUM\TAZOBACTAM SODIUM [Concomitant]
     Active Substance: PIPERACILLIN SODIUM\TAZOBACTAM SODIUM
     Indication: Pneumonia
     Route: 042
     Dates: start: 20231117, end: 20231121
  11. ALBUTEROL [Concomitant]
     Active Substance: ALBUTEROL
     Indication: Chronic obstructive pulmonary disease
     Dosage: 5MG/2.5 ML, SOLUTION FOR INHALATION BY NEBULISER IN SINGLE-DOSE CONTAINER
     Route: 055
     Dates: start: 20231118, end: 20231121

REACTIONS (2)
  - Drug interaction [Fatal]
  - Haemorrhagic stroke [Fatal]

NARRATIVE: CASE EVENT DATE: 20231120
